FAERS Safety Report 19707283 (Version 1)
Quarter: 2021Q3

REPORT INFORMATION
  Report Type: Report from Study
  Country: US (occurrence: US)
  Receive Date: 20210817
  Receipt Date: 20210817
  Transmission Date: 20211014
  Serious: Yes (Other)
  Sender: FDA-Public Use
  Company Number: US-JNJFOC-20210813722

PATIENT
  Age: 58 Year
  Sex: Female

DRUGS (2)
  1. PONESIMOD [Suspect]
     Active Substance: PONESIMOD
     Indication: MULTIPLE SCLEROSIS
     Route: 065
  2. PONESIMOD [Suspect]
     Active Substance: PONESIMOD
     Dosage: MAINTENANCE DOSE
     Route: 065

REACTIONS (6)
  - Muscle spasms [Recovering/Resolving]
  - Abdominal pain [Recovering/Resolving]
  - Pain [Unknown]
  - Muscular weakness [Recovering/Resolving]
  - Back pain [Recovering/Resolving]
  - Musculoskeletal chest pain [Not Recovered/Not Resolved]

NARRATIVE: CASE EVENT DATE: 20210806
